FAERS Safety Report 24075532 (Version 1)
Quarter: 2024Q3

REPORT INFORMATION
  Report Type: Spontaneous
  Country: US (occurrence: US)
  Receive Date: 20240710
  Receipt Date: 20240710
  Transmission Date: 20241016
  Serious: Yes (Death)
  Sender: EAGLE
  Company Number: US-EAGLE PHARMACEUTICALS, INC.-US-2024EAG000173

PATIENT
  Age: 55 Year
  Sex: Female

DRUGS (2)
  1. PEMFEXY [Suspect]
     Active Substance: PEMETREXED MONOHYDRATE
     Indication: Non-small cell lung cancer
     Dosage: UNK
     Route: 042
  2. PEMFEXY [Suspect]
     Active Substance: PEMETREXED MONOHYDRATE
     Indication: Mesothelioma

REACTIONS (1)
  - Death [Fatal]

NARRATIVE: CASE EVENT DATE: 20240528
